FAERS Safety Report 5606576-0 (Version None)
Quarter: 2008Q1

REPORT INFORMATION
  Report Type: 
  Country: None (occurrence: None)
  Receive Date: 20080129
  Receipt Date: 20080123
  Transmission Date: 20080703
  Serious: Yes (Hospitalization)
  Sender: FDA-Public Use
  Company Number: JP-SANOFI-SYNTHELABO-A01200800244

PATIENT
  Age: 60 Year
  Sex: Male
  Weight: 50 kg

DRUGS (7)
  1. PLAVIX [Suspect]
     Indication: STENT PLACEMENT
     Dosage: 150 MG ONCE FOLLOWED BY 75 MG DAILY
     Route: 048
     Dates: start: 20071227, end: 20071230
  2. PLAVIX [Suspect]
     Indication: ANGINA UNSTABLE
     Dosage: 150 MG ONCE FOLLOWED BY 75 MG DAILY
     Route: 048
     Dates: start: 20071227, end: 20071230
  3. ASPIRIN [Concomitant]
     Indication: STENT PLACEMENT
     Dosage: UNK
     Route: 065
     Dates: start: 20071227, end: 20071227
  4. ASPIRIN [Concomitant]
     Indication: ANGINA UNSTABLE
     Dosage: UNK
     Route: 065
     Dates: start: 20071227, end: 20071227
  5. TICLOPIDINE HCL [Suspect]
     Indication: STENT PLACEMENT
     Route: 048
     Dates: start: 20071227, end: 20071227
  6. TICLOPIDINE HCL [Suspect]
     Indication: ANGINA UNSTABLE
     Route: 048
     Dates: start: 20071227, end: 20071227
  7. CANDESARTAN CILEXETIL [Concomitant]
     Indication: DRUG USE FOR UNKNOWN INDICATION
     Dosage: UNK
     Route: 065

REACTIONS (2)
  - DRUG INEFFECTIVE [None]
  - THROMBOSIS [None]
